FAERS Safety Report 24742767 (Version 1)
Quarter: 2024Q4

REPORT INFORMATION
  Report Type: Spontaneous
  Country: AU (occurrence: AU)
  Receive Date: 20241217
  Receipt Date: 20241217
  Transmission Date: 20250115
  Serious: Yes (Hospitalization)
  Sender: MERCK
  Company Number: AU-009507513-2412AUS005008

PATIENT
  Age: 57 Year
  Sex: Male
  Weight: 103.8 kg

DRUGS (10)
  1. PEMBROLIZUMAB [Suspect]
     Active Substance: PEMBROLIZUMAB
     Indication: Lung cancer metastatic
     Dosage: UNK, Q3W
     Route: 042
     Dates: start: 20230417
  2. CARBOPLATIN [Suspect]
     Active Substance: CARBOPLATIN
     Indication: Lung cancer metastatic
     Dosage: 750 MILLIGRAM
     Route: 042
     Dates: start: 20230417
  3. PEMETREXED [Suspect]
     Active Substance: PEMETREXED
     Indication: Lung cancer metastatic
     Dosage: 1100 MILLIGRAM, Q3W
     Route: 042
     Dates: start: 20230417
  4. FEXOFENADINE HYDROCHLORIDE [Concomitant]
     Active Substance: FEXOFENADINE HYDROCHLORIDE
     Dosage: 1 DOSE UNSPECIFIED, QD
     Route: 048
     Dates: start: 20240130
  5. CYANOCOBALAMIN [Concomitant]
     Active Substance: CYANOCOBALAMIN
     Dosage: 1000 MICROGRAM, PRN
     Route: 030
     Dates: start: 20230417
  6. DEXAMETHASONE [Concomitant]
     Active Substance: DEXAMETHASONE
     Dosage: 4 MILLIGRAM, PRN
     Route: 048
     Dates: start: 20230416
  7. FOLIC ACID [Concomitant]
     Active Substance: FOLIC ACID
     Dosage: 500 MICROGRAM, QD
     Route: 048
     Dates: start: 20230417
  8. MELATONIN [Concomitant]
     Active Substance: MELATONIN
     Dosage: 1 DOSE UNSPECIFIED, QD
     Route: 048
     Dates: start: 20240218
  9. PERINDOPRIL [Concomitant]
     Active Substance: PERINDOPRIL
     Indication: Hypertension
     Dosage: 10 MILLIGRAM, QD; PILL
     Route: 048
  10. SIMVASTATIN [Concomitant]
     Active Substance: SIMVASTATIN
     Indication: Blood cholesterol increased
     Dosage: 20 MILLIGRAM, QD
     Route: 048
     Dates: start: 202308

REACTIONS (1)
  - Fracture [Not Recovered/Not Resolved]

NARRATIVE: CASE EVENT DATE: 20241026
